FAERS Safety Report 5508574-4 (Version None)
Quarter: 2007Q4

REPORT INFORMATION
  Report Type: 
  Country: None (occurrence: None)
  Receive Date: 20071031
  Receipt Date: 20070714
  Transmission Date: 20080405
  Serious: No
  Sender: FDA-Public Use
  Company Number: 2007PV033160

PATIENT
  Age: 57 Year
  Sex: Female

DRUGS (6)
  1. SYMLIN [Suspect]
     Indication: TYPE 2 DIABETES MELLITUS
     Dosage: 120 MCG;BID;SC; 162 MCG;BID; SC; 18 MCG;BID; SC
     Route: 058
     Dates: start: 20060101, end: 20070601
  2. SYMLIN [Suspect]
     Indication: TYPE 2 DIABETES MELLITUS
     Dosage: 120 MCG;BID;SC; 162 MCG;BID; SC; 18 MCG;BID; SC
     Route: 058
     Dates: start: 20060101
  3. SYMLIN [Suspect]
     Indication: TYPE 2 DIABETES MELLITUS
     Dosage: 120 MCG;BID;SC; 162 MCG;BID; SC; 18 MCG;BID; SC
     Route: 058
     Dates: start: 20061001
  4. LANTUS [Concomitant]
  5. BYETTA [Concomitant]
  6. BYETTA [Concomitant]

REACTIONS (4)
  - ABDOMINAL PAIN UPPER [None]
  - BLOOD GLUCOSE INCREASED [None]
  - NAUSEA [None]
  - SPINAL COLUMN STENOSIS [None]
